FAERS Safety Report 24175223 (Version 1)
Quarter: 2024Q3

REPORT INFORMATION
  Report Type: Spontaneous
  Country: US (occurrence: US)
  Receive Date: 20240805
  Receipt Date: 20240805
  Transmission Date: 20241017
  Serious: No
  Sender: SANDOZ
  Company Number: US-SANDOZ-SDZ2024US070400

PATIENT
  Sex: Female

DRUGS (1)
  1. TRIAMCINOLONE [Suspect]
     Active Substance: TRIAMCINOLONE
     Indication: Product use in unapproved indication
     Dosage: UNK
     Route: 065

REACTIONS (5)
  - Breast cyst [Unknown]
  - Skin exfoliation [Unknown]
  - Eczema [Unknown]
  - Skin disorder [Unknown]
  - Exfoliative rash [Unknown]
